FAERS Safety Report 8823757 (Version 1)
Quarter: 2012Q4

REPORT INFORMATION
  Report Type: 
  Country: US (occurrence: US)
  Receive Date: 20121003
  Receipt Date: 20121003
  Transmission Date: 20130627
  Serious: No
  Sender: FDA-Public Use
  Company Number: US-ASTRAZENECA-2012SE73675

PATIENT
  Age: 76 Year
  Sex: Female

DRUGS (2)
  1. SEROQUEL [Suspect]
     Route: 048
  2. SEROQUEL [Suspect]
     Dosage: GENERIC
     Route: 048

REACTIONS (5)
  - Blood pressure increased [Unknown]
  - Insomnia [Unknown]
  - Anxiety [Unknown]
  - Heart rate increased [Unknown]
  - Drug ineffective [Unknown]
